FAERS Safety Report 5081876-4 (Version None)
Quarter: 2006Q3

REPORT INFORMATION
  Report Type: 
  Country: None (occurrence: None)
  Receive Date: 20060816
  Receipt Date: 20060808
  Transmission Date: 20061208
  Serious: Yes (Other)
  Sender: FDA-Public Use
  Company Number: JP-MERCK-0608USA02596

PATIENT
  Age: 30 Year
  Sex: Male

DRUGS (6)
  1. PEPCID [Suspect]
     Route: 042
     Dates: start: 20060807, end: 20060807
  2. VITAMEDIN [Concomitant]
     Route: 042
     Dates: start: 20060807, end: 20060807
  3. THIAMINE DISULFIDE PHOSPHATE [Concomitant]
     Route: 042
     Dates: start: 20060807, end: 20060807
  4. PYRIDOXINE HYDROCHLORIDE [Concomitant]
     Route: 042
     Dates: start: 20060807, end: 20060807
  5. CYANOCOBALAMIN [Concomitant]
     Route: 042
     Dates: start: 20060807, end: 20060807
  6. LEVOFLOXACIN [Concomitant]
     Route: 065

REACTIONS (1)
  - ANAPHYLACTIC SHOCK [None]
